FAERS Safety Report 9119887 (Version 4)
Quarter: 2014Q2

REPORT INFORMATION
  Report Type: Spontaneous
  Country: CA (occurrence: CA)
  Receive Date: 20130226
  Receipt Date: 20140606
  Transmission Date: 20141212
  Serious: Yes (Life-Threatening, Hospitalization)
  Sender: FDA-Public Use
  Company Number: CA-JNJFOC-20130212082

PATIENT
  Age: 16 Year
  Sex: Male
  Weight: 56.52 kg

DRUGS (13)
  1. TYLENOL [Suspect]
     Route: 048
  2. TYLENOL [Suspect]
     Indication: PRODUCT USED FOR UNKNOWN INDICATION
     Dosage: 20 TABLETS OF 500MG
     Route: 048
     Dates: start: 20110911, end: 20110911
  3. BENADRYL [Suspect]
     Indication: PRODUCT USED FOR UNKNOWN INDICATION
     Dosage: 48 TABLETS OF 25 MG
     Route: 048
     Dates: start: 20110911, end: 20110911
  4. PHENYLEPHRINE HCL [Suspect]
     Indication: PRODUCT USED FOR UNKNOWN INDICATION
     Dosage: 20 TABLETS OF 5 MG
     Route: 048
     Dates: start: 20110911, end: 20110911
  5. ATORVASTATIN CALCIUM [Suspect]
     Indication: TYPE IIA HYPERLIPIDAEMIA
     Route: 048
     Dates: start: 20110518
  6. ATORVASTATIN CALCIUM [Suspect]
     Indication: TYPE IIA HYPERLIPIDAEMIA
     Route: 048
     Dates: start: 20110911, end: 20110913
  7. ATORVASTATIN CALCIUM [Suspect]
     Indication: TYPE IIA HYPERLIPIDAEMIA
     Route: 048
     Dates: start: 20090526, end: 20101208
  8. ATORVASTATIN CALCIUM [Suspect]
     Indication: TYPE IIA HYPERLIPIDAEMIA
     Route: 048
     Dates: start: 20101209, end: 20110517
  9. ADVIL [Suspect]
     Indication: PRODUCT USED FOR UNKNOWN INDICATION
     Dosage: 30 TABLETS OF 100 MG
     Route: 048
     Dates: start: 20111011
  10. ADVIL [Suspect]
     Indication: PRODUCT USED FOR UNKNOWN INDICATION
     Dosage: 72 TABLETS OF 200 MG
     Route: 048
     Dates: start: 20110911
  11. CHLORPHENIRAMINE [Suspect]
     Indication: PRODUCT USED FOR UNKNOWN INDICATION
     Dosage: 10 TABLETS OF 2 MG
     Route: 048
     Dates: start: 20110911, end: 20110911
  12. LAUNDRY DETERGENT [Suspect]
     Indication: PRODUCT USED FOR UNKNOWN INDICATION
     Route: 065
     Dates: start: 20110911, end: 20110911
  13. ALCOHOL [Suspect]
     Indication: PRODUCT USED FOR UNKNOWN INDICATION
     Route: 048
     Dates: start: 20110911, end: 20110911

REACTIONS (4)
  - Suicide attempt [Recovering/Resolving]
  - Intentional overdose [Recovered/Resolved]
  - Intentional overdose [Unknown]
  - Toxicity to various agents [Recovering/Resolving]
